FAERS Safety Report 8180670-5 (Version None)
Quarter: 2012Q1

REPORT INFORMATION
  Report Type: 
  Country: None (occurrence: None)
  Receive Date: 20120302
  Receipt Date: 20120216
  Transmission Date: 20120608
  Serious: Yes (Hospitalization)
  Sender: FDA-Public Use
  Company Number: CN-WATSON-2012-03102

PATIENT
  Age: 29 Year
  Sex: Female

DRUGS (1)
  1. BACLOFEN [Suspect]
     Indication: SUICIDE ATTEMPT
     Dosage: 100 MG, SINGLE
     Route: 065

REACTIONS (6)
  - HYPOREFLEXIA [None]
  - COMA [None]
  - GRAND MAL CONVULSION [None]
  - OVERDOSE [None]
  - LOSS OF CONSCIOUSNESS [None]
  - HYPOTONIA [None]
